FAERS Safety Report 5729322-9 (Version None)
Quarter: 2008Q2

REPORT INFORMATION
  Report Type: 
  Country: None (occurrence: None)
  Receive Date: 20080501
  Receipt Date: 20080421
  Transmission Date: 20081010
  Serious: Yes (Hospitalization)
  Sender: FDA-Public Use
  Company Number: 2008BI008014

PATIENT
  Age: 30 Year
  Sex: Female

DRUGS (5)
  1. AVONEX [Suspect]
     Indication: MULTIPLE SCLEROSIS
     Dosage: 30 UG; QW; IM
     Route: 030
     Dates: start: 20060101
  2. CELEXA [Concomitant]
  3. BACLOFEN [Concomitant]
  4. HYRDOCHLOROTHIAZIDE [Concomitant]
  5. PRILOSEC [Concomitant]

REACTIONS (4)
  - COLONIC STENOSIS [None]
  - NORMOCHROMIC NORMOCYTIC ANAEMIA [None]
  - PANCREATITIS [None]
  - PNEUMONIA [None]
